FAERS Safety Report 9053910 (Version 1)
Quarter: 2013Q1

REPORT INFORMATION
  Report Type: Spontaneous
  Country: US (occurrence: None)
  Receive Date: 20130201
  Receipt Date: 20130201
  Transmission Date: 20140127
  Serious: No
  Sender: FDA-Public Use
  Company Number: None

PATIENT
  Sex: Female
  Weight: 65.32 kg

DRUGS (1)
  1. RECLAST [Suspect]
     Indication: OSTEOPOROSIS
     Dosage: 5MG/100ML 1 TIME IV

REACTIONS (11)
  - Musculoskeletal stiffness [None]
  - Gait disturbance [None]
  - Local swelling [None]
  - Arthralgia [None]
  - Pain in extremity [None]
  - Pain in extremity [None]
  - Pain [None]
  - Local swelling [None]
  - Erythema [None]
  - Dyspepsia [None]
  - Blood pressure increased [None]
